FAERS Safety Report 19475690 (Version 2)
Quarter: 2021Q3

REPORT INFORMATION
  Report Type: Spontaneous
  Country: HK (occurrence: HK)
  Receive Date: 20210630
  Receipt Date: 20210702
  Transmission Date: 20211014
  Serious: Yes (Other)
  Sender: FDA-Public Use
  Company Number: HK-PFIZER INC-2021691991

PATIENT
  Age: 46 Year
  Sex: Male

DRUGS (2)
  1. VANCOMYCIN HCL [Suspect]
     Active Substance: VANCOMYCIN HYDROCHLORIDE
     Indication: OSTEOMYELITIS CHRONIC
     Dosage: LOADED BONE CEMENT
  2. GENTAMICIN. [Concomitant]
     Active Substance: GENTAMICIN
     Indication: OSTEOMYELITIS CHRONIC
     Dosage: UNK

REACTIONS (4)
  - Human herpesvirus 6 infection [Recovered/Resolved]
  - Liver function test abnormal [Recovered/Resolved]
  - Drug reaction with eosinophilia and systemic symptoms [Recovered/Resolved]
  - Acute kidney injury [Recovered/Resolved]
